FAERS Safety Report 8588070-0 (Version None)
Quarter: 2012Q3

REPORT INFORMATION
  Report Type: 
  Country: None (occurrence: None)
  Receive Date: 20120813
  Receipt Date: 20120810
  Transmission Date: 20120928
  Serious: No
  Sender: FDA-Public Use
  Company Number: US-PFIZER INC-2012196001

PATIENT
  Age: 61 Year
  Sex: Female
  Weight: 60 kg

DRUGS (3)
  1. METOPROLOL [Concomitant]
     Indication: HEART RATE IRREGULAR
     Dosage: 25 MG, 2X/DAY
  2. CELEBREX [Suspect]
     Indication: ARTHRITIS
     Dosage: 200 MG, DAILY
     Dates: start: 20120501
  3. CELEBREX [Suspect]
     Dosage: 200 MG, 3X/WEEK
     Dates: end: 20120101

REACTIONS (2)
  - URTICARIA [None]
  - PRURITUS [None]
